FAERS Safety Report 6272503-9 (Version None)
Quarter: 2009Q3

REPORT INFORMATION
  Report Type: 
  Country: None (occurrence: None)
  Receive Date: 20090716
  Receipt Date: 20090716
  Transmission Date: 20100115
  Serious: Yes (Other)
  Sender: FDA-Public Use
  Company Number: None

PATIENT
  Sex: Female
  Weight: 126.1 kg

DRUGS (1)
  1. IMURAN [Suspect]
     Indication: SJOGREN'S SYNDROME
     Dosage: ONE A DAY
     Dates: start: 20090625, end: 20090714

REACTIONS (4)
  - DIARRHOEA [None]
  - MALAISE [None]
  - NAUSEA [None]
  - VOMITING [None]
